FAERS Safety Report 9298875 (Version 1)
Quarter: 2013Q2

REPORT INFORMATION
  Report Type: Spontaneous
  Country: US (occurrence: US)
  Receive Date: 20130520
  Receipt Date: 20130520
  Transmission Date: 20140414
  Serious: No
  Sender: FDA-Public Use
  Company Number: US-SANOFI-AVENTIS-2012SA034155

PATIENT
  Age: 46 Year
  Sex: Female

DRUGS (1)
  1. APIDRA [Suspect]
     Indication: TYPE 1 DIABETES MELLITUS
     Route: 058
     Dates: start: 201204, end: 20120508

REACTIONS (2)
  - Catheter site discharge [Recovering/Resolving]
  - Catheter site swelling [Recovering/Resolving]
